FAERS Safety Report 6841120-1 (Version None)
Quarter: 2010Q3

REPORT INFORMATION
  Report Type: 
  Country: None (occurrence: None)
  Receive Date: 20100714
  Receipt Date: 20070628
  Transmission Date: 20110219
  Serious: No
  Sender: FDA-Public Use
  Company Number: US-PFIZER INC-2007053499

PATIENT
  Sex: Female
  Weight: 68.2 kg

DRUGS (5)
  1. CHANTIX [Suspect]
     Indication: SMOKING CESSATION THERAPY
     Dates: start: 20070529
  2. LISINOPRIL [Concomitant]
     Indication: BLOOD PRESSURE
  3. PRAVACHOL [Concomitant]
  4. ZETIA [Concomitant]
  5. WELLBUTRIN [Concomitant]

REACTIONS (4)
  - ABDOMINAL DISCOMFORT [None]
  - DIZZINESS [None]
  - MALAISE [None]
  - NAUSEA [None]
